FAERS Safety Report 20797541 (Version 3)
Quarter: 2022Q2

REPORT INFORMATION
  Report Type: Report from Study
  Country: CN (occurrence: CN)
  Receive Date: 20220506
  Receipt Date: 20220610
  Transmission Date: 20220721
  Serious: Yes (Life-Threatening, Hospitalization)
  Sender: FDA-Public Use
  Company Number: CN-JNJFOC-20220500003

PATIENT
  Age: 75 Year
  Sex: Male
  Weight: 62 kg

DRUGS (1)
  1. AMIVANTAMAB [Suspect]
     Active Substance: AMIVANTAMAB
     Indication: Non-small cell lung cancer
     Dosage: MEDICATION KIT NUMBERS: 303014 AND 303015
     Route: 042
     Dates: start: 20200929, end: 20220426

REACTIONS (2)
  - Upper gastrointestinal haemorrhage [Recovered/Resolved]
  - Acute coronary syndrome [Recovered/Resolved]

NARRATIVE: CASE EVENT DATE: 20220429
